FAERS Safety Report 18374040 (Version 1)
Quarter: 2020Q4

REPORT INFORMATION
  Report Type: Spontaneous
  Country: GB (occurrence: GB)
  Receive Date: 20201012
  Receipt Date: 20201012
  Transmission Date: 20210114
  Serious: Yes (Other)
  Sender: FDA-Public Use
  Company Number: GB-BAUSCH-BL-2020-028466

PATIENT
  Age: 35 Year
  Sex: Female

DRUGS (11)
  1. ALEMTUZUMAB [Concomitant]
     Active Substance: ALEMTUZUMAB
     Indication: RENAL FAILURE
  2. ASPIRIN. [Concomitant]
     Active Substance: ASPIRIN
     Indication: GASTROINTESTINAL BACTERIAL OVERGROWTH
  3. TACROLIMUS. [Suspect]
     Active Substance: TACROLIMUS
     Indication: IMMUNOSUPPRESSION
     Route: 065
  4. SIMVASTATIN. [Concomitant]
     Active Substance: SIMVASTATIN
     Indication: GASTROINTESTINAL BACTERIAL OVERGROWTH
  5. RIFAXIMIN. [Concomitant]
     Active Substance: RIFAXIMIN
     Indication: GASTROINTESTINAL BACTERIAL OVERGROWTH
  6. ACYCLOVIR. [Suspect]
     Active Substance: ACYCLOVIR
     Indication: HERPES ZOSTER
     Route: 048
  7. ALFACALCIDOL [Concomitant]
     Active Substance: ALFACALCIDOL
     Indication: GASTROINTESTINAL BACTERIAL OVERGROWTH
  8. RANITIDINE. [Concomitant]
     Active Substance: RANITIDINE
     Indication: GASTROINTESTINAL BACTERIAL OVERGROWTH
  9. FOLIC ACID. [Concomitant]
     Active Substance: FOLIC ACID
     Indication: GASTROINTESTINAL BACTERIAL OVERGROWTH
  10. ALEMTUZUMAB [Concomitant]
     Active Substance: ALEMTUZUMAB
     Indication: TYPE 1 DIABETES MELLITUS
  11. TACROLIMUS. [Suspect]
     Active Substance: TACROLIMUS
     Indication: GASTROINTESTINAL BACTERIAL OVERGROWTH

REACTIONS (1)
  - Autoimmune pancytopenia [Unknown]
